FAERS Safety Report 5181010-6 (Version None)
Quarter: 2006Q4

REPORT INFORMATION
  Report Type: 
  Country: None (occurrence: None)
  Receive Date: 20061212
  Receipt Date: 20061129
  Transmission Date: 20070319
  Serious: Yes (Other)
  Sender: FDA-Public Use
  Company Number: 150412USA

PATIENT
  Age: 53 Year
  Sex: Male

DRUGS (1)
  1. SIMVASTATIN [Suspect]
     Indication: HYPERCHOLESTEROLAEMIA
     Dosage: 40 MG ORAL
     Route: 048

REACTIONS (3)
  - CONGENITAL MUSCULOSKELETAL ANOMALY [None]
  - DYSARTHRIA [None]
  - EYELID PTOSIS [None]
